FAERS Safety Report 12046047 (Version 8)
Quarter: 2017Q4

REPORT INFORMATION
  Report Type: Spontaneous
  Country: US (occurrence: US)
  Receive Date: 20160208
  Receipt Date: 20171229
  Transmission Date: 20180320
  Serious: Yes (Congenital Anomaly, Other)
  Sender: FDA-Public Use
  Company Number: PHEH2016US002897

PATIENT
  Sex: Female

DRUGS (1)
  1. ZOFRAN ODT [Suspect]
     Active Substance: ONDANSETRON HYDROCHLORIDE
     Indication: FOETAL EXPOSURE DURING PREGNANCY
     Dosage: MOTHER DOSE: 8 MG PRN
     Route: 064

REACTIONS (18)
  - Left ventricular hypertrophy [Unknown]
  - Developmental delay [Unknown]
  - Anxiety [Unknown]
  - Congenital anomaly [Unknown]
  - Cardiac disorder [Unknown]
  - Pulmonary artery stenosis congenital [Unknown]
  - Atrial septal defect [Unknown]
  - Pain [Unknown]
  - Bundle branch block right [Unknown]
  - Emotional distress [Unknown]
  - Injury [Unknown]
  - Deformity [Unknown]
  - Foetal exposure during pregnancy [Unknown]
  - Jaundice neonatal [Recovered/Resolved]
  - Patent ductus arteriosus [Unknown]
  - Tricuspid valve incompetence [Unknown]
  - Ventricular septal defect [Unknown]
  - Anhedonia [Unknown]
